FAERS Safety Report 7622614-8 (Version None)
Quarter: 2011Q3

REPORT INFORMATION
  Report Type: 
  Country: None (occurrence: None)
  Receive Date: 20110719
  Receipt Date: 20110719
  Transmission Date: 20111222
  Serious: No
  Sender: FDA-Public Use
  Company Number: None

PATIENT
  Age: 37 Year
  Sex: Female
  Weight: 58.9676 kg

DRUGS (1)
  1. COPAXONE [Suspect]
     Indication: MULTIPLE SCLEROSIS
     Dosage: 1ML/20MG DAILY SQ
     Route: 058
     Dates: start: 20050101, end: 20110715

REACTIONS (8)
  - UNEVALUABLE EVENT [None]
  - PREGNANCY [None]
  - MATERNAL EXPOSURE BEFORE PREGNANCY [None]
  - VOMITING [None]
  - CHILLS [None]
  - TREMOR [None]
  - FATIGUE [None]
  - FEELING COLD [None]
